FAERS Safety Report 13108384 (Version 1)
Quarter: 2017Q1

REPORT INFORMATION
  Report Type: Spontaneous
  Country: US (occurrence: US)
  Receive Date: 20170112
  Receipt Date: 20170112
  Transmission Date: 20170428
  Serious: No
  Sender: FDA-Public Use
  Company Number: US-BAYER-2017-006187

PATIENT
  Age: 72 Year
  Sex: Female
  Weight: 56 kg

DRUGS (5)
  1. METAMUCIL [Concomitant]
     Active Substance: PLANTAGO SEED
  2. CLARITIN [Suspect]
     Active Substance: LORATADINE
     Indication: NASOPHARYNGITIS
  3. MAGNESIUM [Concomitant]
     Active Substance: MAGNESIUM
  4. CLARITIN [Suspect]
     Active Substance: LORATADINE
     Indication: HYPERSENSITIVITY
     Dosage: 1 TABLESPOON
     Route: 047
     Dates: start: 20170110, end: 20170110
  5. MELATONIN [Concomitant]
     Active Substance: MELATONIN
     Dosage: UNK

REACTIONS (1)
  - Drug ineffective [Unknown]
